FAERS Safety Report 25430971 (Version 2)
Quarter: 2025Q3

REPORT INFORMATION
  Report Type: Report from Study
  Country: US (occurrence: US)
  Receive Date: 20250612
  Receipt Date: 20250801
  Transmission Date: 20251021
  Serious: Yes (Other)
  Sender: ABBVIE
  Company Number: US-ABBVIE-6285689

PATIENT
  Age: 65 Year
  Sex: Male
  Weight: 74.842 kg

DRUGS (10)
  1. HUMIRA [Suspect]
     Active Substance: ADALIMUMAB
     Indication: Uveitis
     Dosage: CITRATE FREE?DOSAGE FORM: SOLUTION FOR INJECTION IN PRE-FILLED PEN?FORM STRENGTH: 40 MG
     Route: 058
     Dates: start: 20180105
  2. HUMIRA [Suspect]
     Active Substance: ADALIMUMAB
     Indication: Ankylosing spondylitis
  3. METOPROLOL [Concomitant]
     Active Substance: METOPROLOL
     Indication: Hypertension
  4. CANDESARTAN [Concomitant]
     Active Substance: CANDESARTAN
     Indication: Hypertension
  5. PLAVIX [Concomitant]
     Active Substance: CLOPIDOGREL BISULFATE
     Indication: Stent placement
  6. TAMSULOSIN [Concomitant]
     Active Substance: TAMSULOSIN
     Indication: Micturition disorder
  7. ELIQUIS [Concomitant]
     Active Substance: APIXABAN
     Indication: Atrial fibrillation
  8. ATORVASTATIN [Concomitant]
     Active Substance: ATORVASTATIN
     Indication: Blood cholesterol
  9. FINASTERIDE [Concomitant]
     Active Substance: FINASTERIDE
     Indication: Prostatomegaly
  10. PEPCID [Concomitant]
     Active Substance: FAMOTIDINE
     Indication: Dyspepsia

REACTIONS (6)
  - Coronary artery occlusion [Recovered/Resolved]
  - Myalgia [Recovering/Resolving]
  - Dyspnoea [Recovered/Resolved]
  - Dyspepsia [Recovered/Resolved]
  - Fatigue [Recovered/Resolved]
  - Atrial fibrillation [Not Recovered/Not Resolved]

NARRATIVE: CASE EVENT DATE: 20240101
